FAERS Safety Report 6566738-5 (Version None)
Quarter: 2010Q1

REPORT INFORMATION
  Report Type: 
  Country: None (occurrence: None)
  Receive Date: 20100202
  Receipt Date: 20100122
  Transmission Date: 20100710
  Serious: Yes (Other)
  Sender: FDA-Public Use
  Company Number: JP-WYE-H12849110

PATIENT
  Sex: Male
  Weight: 41 kg

DRUGS (8)
  1. ZOSYN [Suspect]
     Indication: PERITONITIS
     Route: 042
     Dates: start: 20091225, end: 20091229
  2. VITAMINS NOS [Concomitant]
     Dosage: UNKNOWN
     Route: 041
     Dates: start: 20091227, end: 20091228
  3. VITAMINS NOS [Concomitant]
     Dosage: UNKNOWN
     Route: 041
     Dates: start: 20091229, end: 20091231
  4. PLASMA PROTEIN FRACTION (HUMAN) [Concomitant]
     Indication: BLOOD ALBUMIN DECREASED
     Route: 041
     Dates: start: 20091228
  5. AMINO ACIDS NOS/CARBOHYDRATES NOS/ELECTROLYTES NOS [Concomitant]
     Dosage: UNKNOWN
     Dates: start: 20091227, end: 20091228
  6. AMINO ACIDS NOS/CARBOHYDRATES NOS/ELECTROLYTES NOS [Concomitant]
     Dosage: UNKNOWN
     Route: 041
     Dates: start: 20091229, end: 20091231
  7. CATABON [Concomitant]
     Indication: HYPOTENSION
     Dosage: UNKNOWN
     Route: 041
     Dates: start: 20091223
  8. POTACOL-R [Concomitant]
     Dosage: UNKNOWN
     Route: 041
     Dates: start: 20091224, end: 20091228

REACTIONS (6)
  - ALANINE AMINOTRANSFERASE INCREASED [None]
  - ASPARTATE AMINOTRANSFERASE INCREASED [None]
  - BLOOD ALKALINE PHOSPHATASE INCREASED [None]
  - BLOOD LACTATE DEHYDROGENASE INCREASED [None]
  - GAMMA-GLUTAMYLTRANSFERASE INCREASED [None]
  - HEPATIC FUNCTION ABNORMAL [None]
